FAERS Safety Report 8218876-9 (Version None)
Quarter: 2012Q1

REPORT INFORMATION
  Report Type: 
  Country: None (occurrence: None)
  Receive Date: 20120306
  Receipt Date: 20110622
  Transmission Date: 20120608
  Serious: Yes (Hospitalization)
  Sender: FDA-Public Use
  Company Number: US-006388

PATIENT
  Age: 69 Year
  Sex: Female
  Weight: 46.8 kg

DRUGS (4)
  1. ASPIRIN (ACETYLSALIC ACID) [Concomitant]
  2. ISOVUE-370 [Suspect]
     Indication: MYOCARDIAL INFARCTION
     Dosage: 130 ML ONCE INTRA-ARTERIAL
     Route: 013
     Dates: start: 20110412, end: 20110412
  3. ISOVUE-370 [Suspect]
     Indication: CATHETERISATION CARDIAC
     Dosage: 130 ML ONCE INTRA-ARTERIAL
     Route: 013
     Dates: start: 20110412, end: 20110412
  4. METOPROLOL TARTRATE [Concomitant]

REACTIONS (1)
  - ANAPHYLACTIC SHOCK [None]
